FAERS Safety Report 9630189 (Version 2)
Quarter: 2013Q4

REPORT INFORMATION
  Report Type: Spontaneous
  Country: US (occurrence: US)
  Receive Date: 20131017
  Receipt Date: 20131022
  Transmission Date: 20140711
  Serious: Yes (Other)
  Sender: FDA-Public Use
  Company Number: CHPA2013US015671

PATIENT
  Age: 70 Year
  Sex: Female

DRUGS (4)
  1. VOLTAREN GEL [Suspect]
     Indication: KNEE OPERATION
     Dosage: UNK, UNK
     Route: 061
     Dates: start: 2010, end: 2010
  2. VOLTAREN GEL [Suspect]
     Indication: OFF LABEL USE
  3. BABY ASPIRIN [Concomitant]
     Dosage: UNK, UNK
     Route: 048
  4. BETA BLOCKING AGENTS, SELECTIVE [Concomitant]
     Dosage: UNK, UNK
     Route: 048
     Dates: start: 201308

REACTIONS (4)
  - Chondropathy [Unknown]
  - Arthritis [Unknown]
  - Abasia [Unknown]
  - Tendonitis [Unknown]
